FAERS Safety Report 5614975-6 (Version None)
Quarter: 2008Q1

REPORT INFORMATION
  Report Type: 
  Country: None (occurrence: None)
  Receive Date: 20080201
  Receipt Date: 20080125
  Transmission Date: 20080703
  Serious: Yes (Hospitalization)
  Sender: FDA-Public Use
  Company Number: 163-21880-08011454

PATIENT
  Age: 79 Year
  Sex: Female

DRUGS (10)
  1. REVLIMID [Suspect]
     Indication: MYELOPROLIFERATIVE DISORDER
     Dosage: 10 MG, 1 IN 1 D, ORAL
     Route: 048
     Dates: start: 20070814, end: 20070828
  2. TRIAMTERENE (TRIAMTERENE) [Concomitant]
  3. PREMARIN [Concomitant]
  4. CALCIUM (CALCIUM) [Concomitant]
  5. MULTIVITAMIN (MULTI-VIT) [Concomitant]
  6. PROTONIX [Concomitant]
  7. MEGACE [Concomitant]
  8. PREDNISONE TAB [Concomitant]
  9. HYDREA [Concomitant]
  10. ASPIRIN [Concomitant]

REACTIONS (2)
  - PRESYNCOPE [None]
  - THROMBOCYTHAEMIA [None]
